FAERS Safety Report 22271814 (Version 1)
Quarter: 2023Q2

REPORT INFORMATION
  Report Type: Report from Study
  Country: DE (occurrence: DE)
  Receive Date: 20230502
  Receipt Date: 20230502
  Transmission Date: 20230721
  Serious: Yes (Hospitalization)
  Sender: FDA-Public Use
  Company Number: DE-ABBVIE-4710421

PATIENT
  Age: 70 Year
  Sex: Female

DRUGS (3)
  1. CARBIDOPA\LEVODOPA [Suspect]
     Active Substance: CARBIDOPA\LEVODOPA
     Indication: Parkinson^s disease
     Dosage: MD: 8.0ML; CRD: 2.8ML/H, ED: 1.5ML
     Route: 050
     Dates: start: 20230321, end: 20230326
  2. CARBIDOPA\LEVODOPA [Suspect]
     Active Substance: CARBIDOPA\LEVODOPA
     Dosage: MD: 8.0ML; CRD:3.0ML/H, ED: 1.5ML, DOSE INCREASED?STOP DATE 2023-03
     Route: 050
     Dates: start: 20230326
  3. CARBIDOPA\LEVODOPA [Suspect]
     Active Substance: CARBIDOPA\LEVODOPA
     Dosage: START DATE 2023-03,MD: 8.0ML; CRD: 2.8ML/H, ED: 1.5ML, DOSE REDUCED
     Route: 050

REACTIONS (7)
  - Speech disorder [Not Recovered/Not Resolved]
  - Fall [Recovered/Resolved]
  - Dysphagia [Recovering/Resolving]
  - Restlessness [Recovering/Resolving]
  - Dyskinesia [Unknown]
  - Hypophagia [Unknown]
  - On and off phenomenon [Unknown]

NARRATIVE: CASE EVENT DATE: 20230326
